FAERS Safety Report 6977478-2 (Version None)
Quarter: 2010Q3

REPORT INFORMATION
  Report Type: 
  Country: None (occurrence: None)
  Receive Date: 20100910
  Receipt Date: 20100903
  Transmission Date: 20110219
  Serious: Yes (Hospitalization)
  Sender: FDA-Public Use
  Company Number: JP-ABBOTT-09P-087-0571945-00

PATIENT
  Sex: Female
  Weight: 57.8 kg

DRUGS (10)
  1. HUMIRA [Suspect]
     Indication: RHEUMATOID ARTHRITIS
     Route: 058
     Dates: start: 20080627, end: 20091102
  2. HUMIRA [Suspect]
     Dates: start: 20090601
  3. BETAMETHASONE [Suspect]
     Indication: PRODUCT USED FOR UNKNOWN INDICATION
  4. ALENDRONATE SODIUM [Concomitant]
     Indication: OSTEOPOROSIS
  5. FAMOTIDINE [Concomitant]
     Indication: GASTRITIS
     Route: 048
  6. ATORVASTATIN CALCIUM [Concomitant]
     Indication: HYPERLIPIDAEMIA
     Dosage: 5 MG DAILY
     Route: 048
  7. ESTAZOLAM [Concomitant]
     Indication: INSOMNIA
     Route: 048
  8. PROPIVERINE HYDROCHLORIDE [Concomitant]
     Indication: PRODUCT USED FOR UNKNOWN INDICATION
     Route: 048
  9. ASCORBIC ACID/CALCIUM PANTOTHENATE [Concomitant]
     Indication: PRODUCT USED FOR UNKNOWN INDICATION
     Route: 048
  10. CHINESE MEDICINE [Concomitant]
     Indication: PRODUCT USED FOR UNKNOWN INDICATION
     Route: 048

REACTIONS (6)
  - ANTIMICROBIAL SUSCEPTIBILITY TEST SENSITIVE [None]
  - ARTHRALGIA [None]
  - ERYTHEMA [None]
  - INFECTIVE TENOSYNOVITIS [None]
  - JOINT SWELLING [None]
  - TENDON RUPTURE [None]
